FAERS Safety Report 10199672 (Version 2)
Quarter: 2014Q2

REPORT INFORMATION
  Report Type: Report from Study
  Country: JP (occurrence: JP)
  Receive Date: 20140527
  Receipt Date: 20140616
  Transmission Date: 20141212
  Serious: Yes (Other)
  Sender: FDA-Public Use
  Company Number: JP-BAXTER-2014BAX025723

PATIENT
  Sex: 0

DRUGS (1)
  1. SUPRANE [Suspect]
     Indication: ANAESTHESIA PROCEDURE
     Route: 055

REACTIONS (1)
  - Premature recovery from anaesthesia [Recovered/Resolved]
